FAERS Safety Report 4761459-3 (Version None)
Quarter: 2005Q3

REPORT INFORMATION
  Report Type: 
  Country: None (occurrence: None)
  Receive Date: 20050902
  Receipt Date: 20050902
  Transmission Date: 20060218
  Serious: Yes (Life-Threatening)
  Sender: FDA-Public Use
  Company Number: None

PATIENT
  Age: 52 Year
  Sex: Female

DRUGS (10)
  1. TPN [Suspect]
     Dosage: 1,000 ML AT 125 ML/HR IV
     Route: 042
     Dates: start: 20050806
  2. CLINISOL 15% [Concomitant]
  3. LIPID 20% [Concomitant]
  4. STERILE WATER [Concomitant]
  5. SODIUM CHLORIDE [Concomitant]
  6. SODIUM ACETATE [Concomitant]
  7. POTASSIUM CHLORIDE [Concomitant]
  8. CALCIUM GLUCONATE [Concomitant]
  9. MAGNESIUM SULFATE [Concomitant]
  10. ADULT MVI [Concomitant]

REACTIONS (11)
  - BLOOD MAGNESIUM INCREASED [None]
  - BRAIN ABSCESS [None]
  - DEPRESSED LEVEL OF CONSCIOUSNESS [None]
  - DYSARTHRIA [None]
  - ENCEPHALITIS [None]
  - HYPOTONIA [None]
  - PNEUMONIA [None]
  - SLUGGISHNESS [None]
  - SOMNOLENCE [None]
  - URINE OUTPUT INCREASED [None]
  - WRONG DRUG ADMINISTERED [None]
